FAERS Safety Report 9696914 (Version 2)
Quarter: 2013Q4

REPORT INFORMATION
  Report Type: Spontaneous
  Country: US (occurrence: US)
  Receive Date: 20131119
  Receipt Date: 20131119
  Transmission Date: 20140711
  Serious: No
  Sender: FDA-Public Use
  Company Number: US-GILEAD-2007-0013566

PATIENT
  Age: 58 Year
  Sex: Male
  Weight: 86.64 kg

DRUGS (26)
  1. LETAIRIS [Suspect]
     Indication: PULMONARY ARTERIAL HYPERTENSION
     Route: 048
     Dates: start: 20070910, end: 20070925
  2. NEXIUM [Concomitant]
  3. IBUPROFEN [Concomitant]
  4. CLONIDINE [Concomitant]
  5. NORVASC [Concomitant]
  6. SOMA [Concomitant]
  7. METHADONE [Concomitant]
  8. AMBIEN [Concomitant]
  9. XANAX [Concomitant]
  10. LANTUS [Concomitant]
     Dosage: AT BEDTIME
  11. HUMALOG [Concomitant]
  12. ACTIVA [Concomitant]
  13. SPIRIVA [Concomitant]
  14. VENTOLIN [Concomitant]
  15. VYTORIN [Concomitant]
  16. NITROGLYCERIN [Concomitant]
  17. ASPIRIN [Concomitant]
     Dosage: AT BEDTIME
  18. OXYGEN [Concomitant]
     Dosage: AND AT BEDTIME
     Route: 045
  19. HYDROCODONE [Concomitant]
  20. PROTOPIC [Concomitant]
  21. HALOBETASOL PROPIONATE [Concomitant]
  22. CRYSTALOSE [Concomitant]
     Indication: CONSTIPATION
  23. HYOSCYAMINE [Concomitant]
     Indication: MUSCLE SPASMS
  24. VALIUM [Concomitant]
  25. LYRICA [Concomitant]
  26. ZOLOFT [Concomitant]

REACTIONS (12)
  - Chromaturia [Recovered/Resolved]
  - Pruritus [Unknown]
  - Decreased appetite [Recovered/Resolved]
  - Pyrexia [Recovered/Resolved]
  - Malaise [Recovered/Resolved]
  - Confusional state [Unknown]
  - Vision blurred [Recovered/Resolved]
  - Fatigue [Recovered/Resolved]
  - Constipation [Unknown]
  - Abdominal pain upper [Unknown]
  - Joint swelling [Unknown]
  - Headache [Unknown]
